FAERS Safety Report 21133896 (Version 1)
Quarter: 2022Q3

REPORT INFORMATION
  Report Type: Spontaneous
  Country: US (occurrence: US)
  Receive Date: 20220726
  Receipt Date: 20220726
  Transmission Date: 20221026
  Serious: No
  Sender: FDA-Public Use
  Company Number: US-OYSTER POINT PHARMA, INC.-2022OYS00471

PATIENT
  Age: 72 Year
  Sex: Male
  Weight: 59.864 kg

DRUGS (14)
  1. TYRVAYA [Suspect]
     Active Substance: VARENICLINE TARTRATE
     Indication: Dry eye
     Dosage: 1 SPRAY IN EACH NOSTRIL, 2X/DAY (12 HOURS APART)
     Route: 045
     Dates: start: 20220511, end: 2022
  2. TYRVAYA [Suspect]
     Active Substance: VARENICLINE TARTRATE
     Indication: Blepharitis
     Dosage: 1 SPRAY IN EACH NOSTRIL, 2X/DAY (12 HOURS APART)
     Route: 045
     Dates: start: 2022, end: 2022
  3. TYRVAYA [Suspect]
     Active Substance: VARENICLINE TARTRATE
     Dosage: 1 SPRAY IN EACH NOSTRIL, 2X/DAY (12 HOURS APART)
     Route: 045
     Dates: start: 2022
  4. SALINE MIST [Suspect]
     Active Substance: SODIUM CHLORIDE
     Dosage: 2 SQUIRTS  IN EACH NOSTRIL, 3-4X/DAY
     Route: 045
  5. SALINE MIST [Suspect]
     Active Substance: SODIUM CHLORIDE
     Dosage: 2 SQUIRTS IN EACH NOSTRIL, 3-4X/DAY
     Route: 045
  6. AMLODIPINE [Suspect]
     Active Substance: AMLODIPINE BESYLATE
     Dosage: UNK
     Dates: start: 20220613
  7. MEDICAL MARIJUANA (RICK SIMPSON OIL) [Concomitant]
     Dosage: UNK, 1X/DAY AT NIGHT
  8. CYMBALTA [Concomitant]
     Active Substance: DULOXETINE HYDROCHLORIDE
     Dosage: 60 MG, 1X/DAY
  9. FINASTERIDE [Concomitant]
     Active Substance: FINASTERIDE
     Dosage: 0.5 MG, 1X/DAY
  10. PROPRANOLOL [Concomitant]
     Active Substance: PROPRANOLOL HYDROCHLORIDE
     Dosage: 20 MG, ^MAYBE^ 1-2X/WEEK
  11. ALKALOL [Concomitant]
     Dosage: 2 SPRAYS IN EACH NOSTRIL, 1-2X/DAY
     Route: 045
  12. ALKALOL [Concomitant]
     Dosage: 2 SPRAYS IN EACH NOSTRIL, 1-2X/DAY
     Route: 045
  13. LOSARTAN [Concomitant]
     Active Substance: LOSARTAN
     Dosage: 10-20 MG, 1X/WEEK
  14. LOSARTAN [Concomitant]
     Active Substance: LOSARTAN
     Dosage: 100 MG

REACTIONS (9)
  - Rhinorrhoea [Not Recovered/Not Resolved]
  - Nasal congestion [Recovered/Resolved]
  - Psychomotor hyperactivity [Not Recovered/Not Resolved]
  - Tremor [Not Recovered/Not Resolved]
  - Therapeutic product effect variable [Not Recovered/Not Resolved]
  - Drug effect less than expected [Not Recovered/Not Resolved]
  - Therapeutic response unexpected [Not Recovered/Not Resolved]
  - Incorrect dose administered [Not Recovered/Not Resolved]
  - Product delivery mechanism issue [Not Recovered/Not Resolved]

NARRATIVE: CASE EVENT DATE: 20220501
